FAERS Safety Report 8850176 (Version 1)
Quarter: 2012Q4

REPORT INFORMATION
  Report Type: 
  Country: FR (occurrence: FR)
  Receive Date: 20121019
  Receipt Date: 20121019
  Transmission Date: 20130627
  Serious: Yes (Hospitalization)
  Sender: FDA-Public Use
  Company Number: FR-GLAXOSMITHKLINE-B0836975A

PATIENT
  Age: 68 Year
  Sex: Male
  Weight: 65 kg

DRUGS (10)
  1. ZELITREX [Suspect]
     Indication: HERPES ZOSTER
     Dosage: 1000MG Three times per day
     Route: 048
     Dates: start: 20120901, end: 20120903
  2. BACTRIM [Suspect]
     Indication: PRODUCT USED FOR UNKNOWN INDICATION
     Route: 048
     Dates: start: 20120509, end: 20120903
  3. INVANZ [Suspect]
     Indication: PROSTATITIS ESCHERICHIA COLI
     Dosage: 1G Per day
     Route: 042
     Dates: start: 20120901
  4. RIMIFON [Concomitant]
     Indication: TUBERCULOSIS
     Dates: start: 20120516
  5. ANSATIPINE [Concomitant]
     Indication: TUBERCULOSIS
  6. ETHAMBUTOL [Concomitant]
     Indication: TUBERCULOSIS
     Dates: start: 20120516
  7. PIRAZINAMIDE [Concomitant]
     Indication: TUBERCULOSIS
     Dates: start: 20120516
  8. REYATAZ [Concomitant]
     Indication: HIV INFECTION
     Dates: start: 20120619
  9. NORVIR [Concomitant]
     Indication: HIV INFECTION
     Dates: start: 20120619
  10. TRUVADA [Concomitant]
     Indication: HIV INFECTION
     Dates: start: 20120619

REACTIONS (2)
  - Neutropenia [Recovering/Resolving]
  - Agranulocytosis [Recovering/Resolving]
